FAERS Safety Report 19330202 (Version 1)
Quarter: 2021Q2

REPORT INFORMATION
  Report Type: Spontaneous
  Country: FR (occurrence: FR)
  Receive Date: 20210529
  Receipt Date: 20210529
  Transmission Date: 20210717
  Serious: Yes (Other)
  Sender: FDA-Public Use
  Company Number: FR-AUROBINDO-AUR-APL-2021-021466

PATIENT
  Age: 65 Year
  Sex: Female
  Weight: 65 kg

DRUGS (2)
  1. EXACYL [Suspect]
     Active Substance: TRANEXAMIC ACID
     Indication: HAEMORRHAGE PROPHYLAXIS
     Dosage: 1000 MILLIGRAM THREE TIMES A DAY
     Route: 048
     Dates: start: 20210125, end: 20210126
  2. AMOXICILLIN. [Suspect]
     Active Substance: AMOXICILLIN
     Indication: TOOTH INFECTION
     Dosage: 1 DOSAGE FORM, TWO TIMES A DAY
     Route: 048
     Dates: start: 20210122

REACTIONS (1)
  - Rectal haemorrhage [Recovered/Resolved]

NARRATIVE: CASE EVENT DATE: 20210126
